FAERS Safety Report 14535206 (Version 1)
Quarter: 2018Q1

REPORT INFORMATION
  Report Type: Spontaneous
  Country: US (occurrence: US)
  Receive Date: 20180215
  Receipt Date: 20180215
  Transmission Date: 20180509
  Serious: No
  Sender: FDA-Public Use
  Company Number: US-TEVA-2018-US-849670

PATIENT
  Sex: Female

DRUGS (1)
  1. CLONIDINE ER [Suspect]
     Active Substance: CLONIDINE
     Dosage: 0.1MG AT BEDTIME
     Dates: start: 201711

REACTIONS (2)
  - Wrong technique in product usage process [Unknown]
  - Drug effect incomplete [Unknown]
